FAERS Safety Report 14079427 (Version 2)
Quarter: 2017Q4

REPORT INFORMATION
  Report Type: Spontaneous
  Country: US (occurrence: US)
  Receive Date: 20171012
  Receipt Date: 20171114
  Transmission Date: 20180321
  Serious: No
  Sender: FDA-Public Use
  Company Number: US-BAYER-2017-196345

PATIENT
  Age: 31 Year
  Sex: Female
  Weight: 91.16 kg

DRUGS (3)
  1. MIRENA [Suspect]
     Active Substance: LEVONORGESTREL
     Indication: CONTRACEPTION
     Dosage: 20 MCG/24HR, CONT
     Route: 015
     Dates: start: 20170609, end: 20171010
  2. OMEPRAZOLE. [Concomitant]
     Active Substance: OMEPRAZOLE
  3. LEVOTHYROXINE. [Concomitant]
     Active Substance: LEVOTHYROXINE
     Dosage: 0.15 MG, BID
     Route: 048

REACTIONS (4)
  - Pain [None]
  - Device expulsion [None]
  - Abdominal pain lower [None]
  - Post procedural discomfort [None]

NARRATIVE: CASE EVENT DATE: 20171010
